FAERS Safety Report 24718515 (Version 1)
Quarter: 2024Q4

REPORT INFORMATION
  Report Type: Spontaneous
  Country: US (occurrence: None)
  Receive Date: 20241210
  Receipt Date: 20241210
  Transmission Date: 20250115
  Serious: Yes (unspecified)
  Sender: Public
  Company Number: None

PATIENT
  Age: 60 Year
  Sex: Male
  Weight: 101 kg

DRUGS (2)
  1. CEFEPIME HYDROCHLORIDE [Suspect]
     Active Substance: CEFEPIME HYDROCHLORIDE
     Indication: Pneumonia aspiration
     Dosage: 2.00 G GRAM(S)   TWICE A DAY INTRAVENOUS
     Route: 042
     Dates: start: 20211030, end: 20211030
  2. METRONIDAZOLE HYDROCHLORIDE [Suspect]
     Active Substance: METRONIDAZOLE HYDROCHLORIDE
     Dosage: 500.00 MG 3 TIMES A DAY INTRVENOUS
     Route: 042
     Dates: start: 20211030, end: 20211030

REACTIONS (4)
  - Anaphylactic reaction [None]
  - Tachycardia [None]
  - Therapy cessation [None]
  - Therapy change [None]

NARRATIVE: CASE EVENT DATE: 20211030
